FAERS Safety Report 5985499-1 (Version None)
Quarter: 2008Q4

REPORT INFORMATION
  Report Type: 
  Country: None (occurrence: None)
  Receive Date: 20081208
  Receipt Date: 20080324
  Transmission Date: 20090506
  Serious: No
  Sender: FDA-Public Use
  Company Number: US-AMGEN-KDL270371

PATIENT
  Sex: Female
  Weight: 79.5 kg

DRUGS (9)
  1. ENBREL [Suspect]
     Indication: RHEUMATOID ARTHRITIS
     Route: 058
     Dates: start: 20030811
  2. METHOTREXATE [Concomitant]
     Dates: start: 19900101
  3. FOSAMAX [Concomitant]
  4. PREDNISONE TAB [Concomitant]
  5. LEVOTHYROXINE SODIUM [Concomitant]
  6. PREMARIN [Concomitant]
  7. DARVOCET-N 100 [Concomitant]
  8. VICODIN [Concomitant]
     Dates: start: 20080303, end: 20080317
  9. CELEBREX [Concomitant]
     Dates: start: 20080303, end: 20080317

REACTIONS (3)
  - BACK PAIN [None]
  - PYREXIA [None]
  - RASH GENERALISED [None]
